FAERS Safety Report 16716558 (Version 1)
Quarter: 2019Q3

REPORT INFORMATION
  Report Type: Spontaneous
  Country: CN (occurrence: CN)
  Receive Date: 20190819
  Receipt Date: 20190819
  Transmission Date: 20191005
  Serious: Yes (Hospitalization)
  Sender: FDA-Public Use
  Company Number: CN-PFIZER INC-2019335724

PATIENT
  Age: 35 Year
  Sex: Female

DRUGS (2)
  1. MEDROL [Suspect]
     Active Substance: METHYLPREDNISOLONE
     Dosage: 20 MG, 1X/DAY
     Route: 048
     Dates: start: 20190723
  2. MEDROL [Suspect]
     Active Substance: METHYLPREDNISOLONE
     Dosage: UNK
     Route: 048
     Dates: start: 2018

REACTIONS (5)
  - Systemic lupus erythematosus [Not Recovered/Not Resolved]
  - Gastrointestinal disorder [Not Recovered/Not Resolved]
  - Palpitations [Not Recovered/Not Resolved]
  - Nausea [Not Recovered/Not Resolved]
  - Vomiting [Not Recovered/Not Resolved]

NARRATIVE: CASE EVENT DATE: 20190723
